FAERS Safety Report 7032230-7 (Version None)
Quarter: 2010Q4

REPORT INFORMATION
  Report Type: 
  Country: None (occurrence: None)
  Receive Date: 20101007
  Receipt Date: 20100311
  Transmission Date: 20110411
  Serious: Yes (Other)
  Sender: FDA-Public Use
  Company Number: JP-BRISTOL-MYERS SQUIBB COMPANY-15020563

PATIENT
  Age: 57 Year
  Sex: Male
  Weight: 40 kg

DRUGS (10)
  1. CETUXIMAB [Suspect]
     Indication: OROPHARYNGEAL CANCER RECURRENT
     Dosage: 540MG,1IN1WK, (15DEC09-UNK) 322.5MG,1IN1WK (UNK-02MAR10)
     Route: 042
     Dates: start: 20091215, end: 20100302
  2. CISPLATIN [Suspect]
     Indication: OROPHARYNGEAL CANCER RECURRENT
     Route: 042
     Dates: start: 20091215, end: 20100106
  3. FLUOROURACIL [Suspect]
     Indication: OROPHARYNGEAL CANCER RECURRENT
     Route: 042
     Dates: start: 20091215, end: 20100220
  4. HIRUDOID [Concomitant]
     Indication: DRY SKIN
     Dosage: HIRUDOID SOFT OINTMENT EXTERNAL ROUTE
  5. ALMETA [Concomitant]
     Indication: RASH
     Dosage: OINTMENT
     Route: 003
     Dates: start: 20091215
  6. HACHIAZULE [Concomitant]
     Indication: STOMATITIS
     Dosage: GARGLE
     Dates: start: 20091221
  7. MYSER [Concomitant]
     Indication: RASH
     Route: 003
     Dates: start: 20091215
  8. DRENISON [Concomitant]
     Indication: RASH
     Dosage: DRENISON TAPE
     Route: 003
     Dates: start: 20100215
  9. LENDORMIN [Concomitant]
     Indication: INSOMNIA
     Route: 048
     Dates: start: 20100112
  10. MAGNESIUM SULFATE [Concomitant]
     Indication: BLOOD MAGNESIUM
     Dosage: CORRECTIVE SOLUTION
     Route: 042
     Dates: start: 20100308, end: 20100308

REACTIONS (1)
  - INTRACARDIAC MASS [None]
